FAERS Safety Report 13431259 (Version 2)
Quarter: 2017Q2

REPORT INFORMATION
  Report Type: Spontaneous
  Country: IN (occurrence: IN)
  Receive Date: 20170412
  Receipt Date: 20170418
  Transmission Date: 20170830
  Serious: Yes (Other)
  Sender: FDA-Public Use
  Company Number: IN-ASTELLAS-2017US013441

PATIENT
  Age: 52 Year
  Sex: Male

DRUGS (16)
  1. TELMISARTAN. [Suspect]
     Active Substance: TELMISARTAN
     Route: 065
  2. PREDNISOLONE. [Concomitant]
     Active Substance: PREDNISOLONE
     Route: 065
  3. TACROLIMUS. [Suspect]
     Active Substance: TACROLIMUS
     Dosage: 1 MG/KG, TWICE DAILY (LEVEL 4-5 NG/ML)
     Route: 065
  4. TELMISARTAN. [Suspect]
     Active Substance: TELMISARTAN
     Route: 065
  5. TELMISARTAN. [Suspect]
     Active Substance: TELMISARTAN
     Route: 065
  6. PREDNISOLONE. [Concomitant]
     Active Substance: PREDNISOLONE
     Route: 065
  7. MYCOPHENOLATE MOFETIL. [Concomitant]
     Active Substance: MYCOPHENOLATE MOFETIL
     Indication: RENAL TRANSPLANT
     Dosage: UNK UNK, UNKNOWN FREQ.
     Route: 065
     Dates: start: 20110802
  8. MYCOPHENOLATE SODIUM [Concomitant]
     Active Substance: MYCOPHENOLATE SODIUM
     Indication: RENAL TRANSPLANT
     Route: 065
  9. TACROLIMUS. [Suspect]
     Active Substance: TACROLIMUS
     Dosage: UNK UNK, UNKNOWN FREQ.
     Route: 065
  10. TELMISARTAN. [Suspect]
     Active Substance: TELMISARTAN
     Route: 065
  11. PREDNISOLONE. [Concomitant]
     Active Substance: PREDNISOLONE
     Dates: start: 20110802
  12. PREDNISOLONE. [Concomitant]
     Active Substance: PREDNISOLONE
     Indication: RENAL TRANSPLANT
     Dosage: UNK UNK, UNKNOWN FREQ.
     Route: 065
     Dates: start: 20110802
  13. TACROLIMUS. [Suspect]
     Active Substance: TACROLIMUS
     Indication: RENAL TRANSPLANT
     Dosage: UNK UNK, UNKNOWN FREQ.
     Route: 065
     Dates: start: 20110802
  14. PREDNISOLONE. [Concomitant]
     Active Substance: PREDNISOLONE
     Route: 065
  15. TELMISARTAN. [Suspect]
     Active Substance: TELMISARTAN
     Indication: FOCAL SEGMENTAL GLOMERULOSCLEROSIS
     Dosage: UNK, UNKNOWN FREQ.
     Route: 065
  16. PREDNISOLONE. [Concomitant]
     Active Substance: PREDNISOLONE
     Route: 065

REACTIONS (8)
  - Focal segmental glomerulosclerosis [Recovered/Resolved]
  - Renal failure [Recovering/Resolving]
  - Toxicity to various agents [Recovering/Resolving]
  - Delayed graft function [Recovering/Resolving]
  - Transplant rejection [Recovering/Resolving]
  - Hypotension [Unknown]
  - Dizziness [Unknown]
  - Renal tubular necrosis [Recovering/Resolving]

NARRATIVE: CASE EVENT DATE: 201108
